FAERS Safety Report 8850598 (Version 2)
Quarter: 2012Q4

REPORT INFORMATION
  Report Type: 
  Country: US (occurrence: US)
  Receive Date: 20121019
  Receipt Date: 20121115
  Transmission Date: 20130627
  Serious: Yes (Hospitalization)
  Sender: FDA-Public Use
  Company Number: US-ASTRAZENECA-2012SE78188

PATIENT
  Age: 68 Year
  Sex: Male

DRUGS (9)
  1. NEXIUM [Suspect]
     Route: 048
  2. OMEPRAZOLE [Suspect]
     Route: 048
  3. SIMVASTATIN [Concomitant]
  4. AMLODIPINE [Concomitant]
  5. DIOVAN [Concomitant]
  6. METFORMIN [Concomitant]
  7. THEOPHYLLINE [Concomitant]
  8. VERAPAMIL [Concomitant]
  9. SYMBICORT [Concomitant]

REACTIONS (3)
  - Pneumonia [Unknown]
  - Respiratory tract infection [Unknown]
  - Drug ineffective [Unknown]
